FAERS Safety Report 5929252-3 (Version None)
Quarter: 2008Q4

REPORT INFORMATION
  Report Type: 
  Country: None (occurrence: None)
  Receive Date: 20081023
  Receipt Date: 20081023
  Transmission Date: 20090506
  Serious: Yes (Other)
  Sender: FDA-Public Use
  Company Number: None

PATIENT
  Sex: Female
  Weight: 68.0396 kg

DRUGS (2)
  1. OXYBUTYNIN 5MG WATSON [Suspect]
     Indication: STRESS URINARY INCONTINENCE
     Dosage: 1 TABLET TWICE A DAY PO
     Route: 048
     Dates: start: 20080611, end: 20080904
  2. ESTRADIOL [Suspect]
     Indication: OESTROGEN REPLACEMENT THERAPY
     Dosage: 1 TABLET ONCE A DAY PO
     Route: 048
     Dates: start: 20080611, end: 20080904

REACTIONS (3)
  - DYSARTHRIA [None]
  - MUSCULAR WEAKNESS [None]
  - PRODUCT QUALITY ISSUE [None]
